FAERS Safety Report 5148655-0 (Version None)
Quarter: 2006Q4

REPORT INFORMATION
  Report Type: 
  Country: None (occurrence: None)
  Receive Date: 20061107
  Receipt Date: 20061107
  Transmission Date: 20070319
  Serious: Yes (Other)
  Sender: FDA-Public Use
  Company Number: 2006-048

PATIENT
  Sex: Female

DRUGS (1)
  1. PHYTONADIONE [Suspect]
     Indication: PROPHYLAXIS
     Dosage: 1X, POST PARTUM

REACTIONS (3)
  - ACCIDENTAL NEEDLE STICK [None]
  - DEVICE MALFUNCTION [None]
  - PHARMACEUTICAL PRODUCT COMPLAINT [None]
